FAERS Safety Report 6354555-0 (Version None)
Quarter: 2009Q3

REPORT INFORMATION
  Report Type: 
  Country: None (occurrence: None)
  Receive Date: 20090914
  Receipt Date: 20090904
  Transmission Date: 20100115
  Serious: Yes (Hospitalization, Other)
  Sender: FDA-Public Use
  Company Number: CA-BRISTOL-MYERS SQUIBB COMPANY-14770317

PATIENT
  Age: 79 Year
  Sex: Female

DRUGS (3)
  1. HYDROXYUREA [Suspect]
     Route: 065
  2. SANDOSTATIN LAR [Concomitant]
     Indication: BREAST CANCER
     Dosage: ROUTE: INJECTION (NOS).
     Dates: start: 19980519, end: 20000502
  3. TAMOXIFEN CITRATE [Concomitant]
     Indication: BREAST CANCER
     Route: 065
     Dates: start: 19980519, end: 20030515

REACTIONS (9)
  - ABDOMINAL ADHESIONS [None]
  - ANASTOMOTIC LEAK [None]
  - BONE MARROW FAILURE [None]
  - COLON CANCER STAGE III [None]
  - INCISION SITE ERYTHEMA [None]
  - IRON DEFICIENCY [None]
  - PELVIC ABSCESS [None]
  - PERITONITIS [None]
  - SEPSIS [None]
